FAERS Safety Report 7565187-0 (Version None)
Quarter: 2011Q2

REPORT INFORMATION
  Report Type: 
  Country: None (occurrence: None)
  Receive Date: 20110622
  Receipt Date: 20081027
  Transmission Date: 20111010
  Serious: Yes (Death)
  Sender: FDA-Public Use
  Company Number: PHHY2008DE37546

PATIENT
  Sex: Male

DRUGS (22)
  1. NEXIUM [Concomitant]
  2. HCT-GAMMA [Concomitant]
  3. ALLOPURINOL [Concomitant]
  4. LANTUS [Concomitant]
  5. FORADIL [Concomitant]
  6. ASPIRIN [Concomitant]
  7. BIFITERAL ^PHILIPS^ [Concomitant]
  8. SANDOSTATIN LAR [Suspect]
     Indication: PANCREATIC NEUROENDOCRINE TUMOUR
     Dosage: 20 MG, UNK
     Route: 030
     Dates: start: 20061120
  9. DIGITOXIN TAB [Concomitant]
  10. TORSEMIDE [Concomitant]
  11. ACTRAPID INNOLET [Concomitant]
  12. FORMOTEROL FUMARATE [Concomitant]
  13. RAMIPRIL [Concomitant]
  14. SPASMEX [Concomitant]
  15. SIMVASTATIN [Concomitant]
  16. IBUPROFEN [Concomitant]
  17. NEBIVOLOL HCL [Concomitant]
  18. OMEPRAZOLE [Concomitant]
  19. FLUVASTATIN SODIUM [Concomitant]
  20. NORVASC [Concomitant]
  21. SPIRIVA [Concomitant]
  22. AMLODIPINE [Concomitant]

REACTIONS (1)
  - MYOCARDIAL INFARCTION [None]
